FAERS Safety Report 7531416-2 (Version None)
Quarter: 2011Q2

REPORT INFORMATION
  Report Type: 
  Country: None (occurrence: None)
  Receive Date: 20110608
  Receipt Date: 20110526
  Transmission Date: 20111010
  Serious: Yes (Hospitalization)
  Sender: FDA-Public Use
  Company Number: BR-SANOFI-AVENTIS-2011SA033399

PATIENT
  Age: 48 Year
  Sex: Male

DRUGS (3)
  1. CYCLOSPORINE [Suspect]
     Dosage: DOSE: 3 TABLETS OF 50 MG
     Route: 065
     Dates: end: 20110301
  2. ARAVA [Suspect]
     Route: 065
     Dates: end: 20110301
  3. ACTEMRA [Concomitant]
     Route: 065
     Dates: start: 20091001, end: 20110501

REACTIONS (6)
  - ARTHRALGIA [None]
  - BONE DISORDER [None]
  - PAIN IN EXTREMITY [None]
  - ABASIA [None]
  - WEIGHT DECREASED [None]
  - ANAEMIA [None]
